FAERS Safety Report 6578806-2 (Version None)
Quarter: 2010Q1

REPORT INFORMATION
  Report Type: 
  Country: None (occurrence: None)
  Receive Date: 20100202
  Receipt Date: 20100122
  Transmission Date: 20100710
  Serious: Yes (Death)
  Sender: FDA-Public Use
  Company Number: OSCN-NO-1001S-0026

PATIENT
  Age: 82 Year
  Sex: Female

DRUGS (16)
  1. OMNISCAN [Suspect]
     Indication: DRUG USE FOR UNKNOWN INDICATION
     Dosage: SINGLE DOSE,
  2. DIGOXIN [Concomitant]
  3. CALCIUM CARBONATE [Concomitant]
  4. FUROSEMIDE (DIURAL) [Concomitant]
  5. ALFACALCIDOL (ETALPHA) [Concomitant]
  6. ACETYLSALICYLIC ACID (HJERDYL) [Concomitant]
  7. IRON WITH VITAMIN C [Concomitant]
  8. POTASSIUM CHLORIDE (KALEORID) [Concomitant]
  9. SODIUM BICARBONATE [Concomitant]
  10. ESOMEPRAZOLE MAGNESIUM (NEXIUM) [Concomitant]
  11. PLENDIL [Concomitant]
  12. ZYRTEC [Concomitant]
  13. CALCIUM (CALCIUM SANDOZ) [Concomitant]
  14. LACTULOSE [Concomitant]
  15. SODIUM PICOSULFATE (LAXOBERAL) [Concomitant]
  16. PROCTOSEDYL [Concomitant]

REACTIONS (12)
  - ACCIDENT [None]
  - DRY SKIN [None]
  - EXCORIATION [None]
  - FALL [None]
  - HAEMATOMA [None]
  - IMPAIRED HEALING [None]
  - INJURY [None]
  - MEDICATION ERROR [None]
  - PAIN [None]
  - PERIPHERAL VASCULAR DISORDER [None]
  - PRURITUS [None]
  - SUPERINFECTION [None]
